FAERS Safety Report 10165471 (Version 1)
Quarter: 2014Q2

REPORT INFORMATION
  Report Type: Spontaneous
  Country: US (occurrence: US)
  Receive Date: 20140510
  Receipt Date: 20140510
  Transmission Date: 20141212
  Serious: No
  Sender: FDA-Public Use
  Company Number: US-BRISTOL-MYERS SQUIBB COMPANY-20493375

PATIENT
  Age: 67 Year
  Sex: Female
  Weight: 103.85 kg

DRUGS (4)
  1. BYDUREON [Suspect]
     Indication: TYPE 2 DIABETES MELLITUS
     Dates: start: 2014
  2. PRANDIN [Concomitant]
     Route: 048
  3. LEVEMIR [Concomitant]
     Route: 058
  4. WELCHOL [Concomitant]
     Route: 048

REACTIONS (4)
  - Injection site haemorrhage [Recovered/Resolved]
  - Underdose [Unknown]
  - Injection site pain [Recovered/Resolved]
  - Weight decreased [Unknown]
